FAERS Safety Report 4268080-4 (Version None)
Quarter: 2004Q1

REPORT INFORMATION
  Report Type: 
  Country: None (occurrence: None)
  Receive Date: 20040109
  Receipt Date: 20040109
  Transmission Date: 20041129
  Serious: No
  Sender: FDA-Public Use
  Company Number: None

PATIENT
  Age: 10 Year
  Sex: Male
  Weight: 40.6 kg

DRUGS (4)
  1. CEFEPIME [Suspect]
     Indication: OSTEOMYELITIS
     Dosage: 2 GRAMS Q12
     Dates: start: 20030811, end: 20030829
  2. CEFEPIME [Suspect]
  3. NS [Concomitant]
  4. HEPARIN [Concomitant]

REACTIONS (1)
  - NEUTROPENIA [None]
